FAERS Safety Report 18958956 (Version 3)
Quarter: 2021Q1

REPORT INFORMATION
  Report Type: Spontaneous
  Country: DE (occurrence: DE)
  Receive Date: 20210302
  Receipt Date: 20210315
  Transmission Date: 20210420
  Serious: Yes (Other)
  Sender: FDA-Public Use
  Company Number: DE-JNJFOC-20210245884

PATIENT
  Age: 80 Year
  Sex: Male

DRUGS (11)
  1. ZOLADEX [Concomitant]
     Active Substance: GOSERELIN ACETATE
  2. FOLIC ACID. [Concomitant]
     Active Substance: FOLIC ACID
  3. ATORVASTATIN [Concomitant]
     Active Substance: ATORVASTATIN
  4. COLECALCIFEROL [Concomitant]
     Active Substance: CHOLECALCIFEROL
  5. ERLEADA [Suspect]
     Active Substance: APALUTAMIDE
     Indication: PRODUCT USED FOR UNKNOWN INDICATION
     Dosage: 60 MG 4?0?0?0
     Route: 048
     Dates: start: 20210114, end: 20210223
  6. XGEVA [Concomitant]
     Active Substance: DENOSUMAB
     Indication: BONE DISORDER
     Route: 065
     Dates: start: 20210114
  7. TOREM [TORASEMIDE] [Concomitant]
     Active Substance: TORSEMIDE
  8. CLOTRIGALEN [Concomitant]
  9. MACROGOL [Concomitant]
     Active Substance: POLYETHYLENE GLYCOLS
  10. BISOPROLOL [Concomitant]
     Active Substance: BISOPROLOL
  11. ASS PROTECT [Concomitant]

REACTIONS (4)
  - C-reactive protein increased [Recovered/Resolved]
  - Agranulocytosis [Recovered/Resolved]
  - Leukopenia [Recovered/Resolved]
  - Thrombocytopenia [Recovered/Resolved]

NARRATIVE: CASE EVENT DATE: 20210223
